FAERS Safety Report 13035871 (Version 1)
Quarter: 2016Q4

REPORT INFORMATION
  Report Type: Spontaneous
  Country: US (occurrence: US)
  Receive Date: 20161216
  Receipt Date: 20161216
  Transmission Date: 20170207
  Serious: No
  Sender: FDA-Public Use
  Company Number: US-PFIZER INC-2016582087

PATIENT
  Age: 4 Year

DRUGS (7)
  1. CHILDRENS DIMETAPP COLD AND FEVER (IBUPROFEN\PSEUDOEPHEDRINE HYDROCHLORIDE) [Suspect]
     Active Substance: IBUPROFEN\PSEUDOEPHEDRINE HYDROCHLORIDE
     Indication: NASAL CONGESTION
  2. CHILDRENS DIMETAPP COLD AND FEVER (IBUPROFEN\PSEUDOEPHEDRINE HYDROCHLORIDE) [Suspect]
     Active Substance: IBUPROFEN\PSEUDOEPHEDRINE HYDROCHLORIDE
     Indication: LACRIMATION INCREASED
  3. CHILDRENS DIMETAPP COLD AND FEVER (IBUPROFEN\PSEUDOEPHEDRINE HYDROCHLORIDE) [Suspect]
     Active Substance: IBUPROFEN\PSEUDOEPHEDRINE HYDROCHLORIDE
     Indication: RHINORRHOEA
  4. CHILDRENS DIMETAPP COLD AND FEVER (IBUPROFEN\PSEUDOEPHEDRINE HYDROCHLORIDE) [Suspect]
     Active Substance: IBUPROFEN\PSEUDOEPHEDRINE HYDROCHLORIDE
     Indication: UPPER-AIRWAY COUGH SYNDROME
  5. CHILDRENS DIMETAPP COLD AND FEVER (IBUPROFEN\PSEUDOEPHEDRINE HYDROCHLORIDE) [Suspect]
     Active Substance: IBUPROFEN\PSEUDOEPHEDRINE HYDROCHLORIDE
     Indication: EYE PRURITUS
  6. CHILDRENS DIMETAPP COLD AND FEVER (IBUPROFEN\PSEUDOEPHEDRINE HYDROCHLORIDE) [Suspect]
     Active Substance: IBUPROFEN\PSEUDOEPHEDRINE HYDROCHLORIDE
     Indication: PAIN
     Dosage: UNK
  7. CHILDRENS DIMETAPP COLD AND FEVER (IBUPROFEN\PSEUDOEPHEDRINE HYDROCHLORIDE) [Suspect]
     Active Substance: IBUPROFEN\PSEUDOEPHEDRINE HYDROCHLORIDE
     Indication: SNEEZING

REACTIONS (2)
  - Drug administered to patient of inappropriate age [Unknown]
  - Drug effect decreased [Unknown]
